FAERS Safety Report 25970846 (Version 1)
Quarter: 2025Q4

REPORT INFORMATION
  Report Type: Spontaneous
  Country: EU (occurrence: EU)
  Receive Date: 20251028
  Receipt Date: 20251028
  Transmission Date: 20260117
  Serious: Yes (Death, Hospitalization, Other)
  Sender: AIPING PHARMACEUTICAL
  Company Number: EU-AIPING-2025AILIT00180

PATIENT
  Age: 90 Year
  Sex: Female

DRUGS (1)
  1. ALLOPURINOL [Suspect]
     Active Substance: ALLOPURINOL
     Indication: Product used for unknown indication
     Route: 065

REACTIONS (7)
  - Fulminant type 1 diabetes mellitus [Fatal]
  - Pancreatitis acute [Fatal]
  - Acute respiratory failure [Fatal]
  - Loss of consciousness [Fatal]
  - Acute kidney injury [Fatal]
  - Seizure [Fatal]
  - Drug reaction with eosinophilia and systemic symptoms [Fatal]
